FAERS Safety Report 12540005 (Version 1)
Quarter: 2016Q3

REPORT INFORMATION
  Report Type: Spontaneous
  Country: US (occurrence: None)
  Receive Date: 20160707
  Receipt Date: 20160707
  Transmission Date: 20161109
  Serious: Yes (Congenital Anomaly)
  Sender: FDA-Public Use
  Company Number: None

PATIENT
  Age: 32 Year
  Sex: Female
  Weight: 81.65 kg

DRUGS (1)
  1. HYDROCODONE BITARTRATE ACETAMINO, 500 MG HAZELWOOU, MC INC 63042 USA [Suspect]
     Active Substance: ACETAMINOPHEN\HYDROCODONE BITARTRATE
     Indication: BACK PAIN
     Route: 048

REACTIONS (7)
  - Exposure during pregnancy [None]
  - Irritability [None]
  - Dizziness [None]
  - Maternal drugs affecting foetus [None]
  - Vomiting [None]
  - Hernia [None]
  - Headache [None]

NARRATIVE: CASE EVENT DATE: 20100106
